FAERS Safety Report 23923437 (Version 4)
Quarter: 2025Q1

REPORT INFORMATION
  Report Type: Report from Study
  Country: CN (occurrence: CN)
  Receive Date: 20240531
  Receipt Date: 20250221
  Transmission Date: 20250408
  Serious: Yes (Other)
  Sender: ROCHE
  Company Number: CN-ROCHE-3568193

PATIENT
  Age: 80 Year
  Sex: Female

DRUGS (57)
  1. POLATUZUMAB VEDOTIN [Suspect]
     Active Substance: POLATUZUMAB VEDOTIN
     Indication: Diffuse large B-cell lymphoma
     Route: 040
     Dates: start: 20230710, end: 20230710
  2. POLATUZUMAB VEDOTIN [Suspect]
     Active Substance: POLATUZUMAB VEDOTIN
     Route: 040
     Dates: start: 20230802, end: 20230802
  3. RITUXIMAB [Suspect]
     Active Substance: RITUXIMAB
     Indication: Diffuse large B-cell lymphoma
     Route: 040
     Dates: start: 20230708, end: 20230708
  4. RITUXIMAB [Suspect]
     Active Substance: RITUXIMAB
     Route: 040
     Dates: start: 20230803, end: 20230803
  5. DOXORUBICIN [Suspect]
     Active Substance: DOXORUBICIN
     Indication: Diffuse large B-cell lymphoma
     Route: 065
     Dates: start: 20230708, end: 20230708
  6. VORICONAZOLE [Suspect]
     Active Substance: VORICONAZOLE
     Indication: Oral fungal infection
     Route: 048
     Dates: end: 20230821
  7. DEXAMETHASONE [Suspect]
     Active Substance: DEXAMETHASONE
     Indication: Diffuse large B-cell lymphoma
     Route: 040
     Dates: start: 20230801, end: 20230803
  8. DEXAMETHASONE [Suspect]
     Active Substance: DEXAMETHASONE
     Route: 040
     Dates: start: 20230708, end: 20230713
  9. CYCLOPHOSPHAMIDE [Suspect]
     Active Substance: CYCLOPHOSPHAMIDE
     Indication: Diffuse large B-cell lymphoma
     Route: 040
     Dates: end: 20230805
  10. GLUTATHIONE [Concomitant]
     Active Substance: GLUTATHIONE
     Dates: start: 20230822
  11. VANCOMYCIN HYDROCHLORIDE [Concomitant]
     Active Substance: VANCOMYCIN HYDROCHLORIDE
     Route: 040
     Dates: start: 20230723, end: 20230725
  12. CEFOPERAZONE SODIUM\SULBACTAM SODIUM [Concomitant]
     Active Substance: CEFOPERAZONE SODIUM\SULBACTAM SODIUM
     Dates: start: 20230814
  13. CEFOPERAZONE SODIUM\SULBACTAM SODIUM [Concomitant]
     Active Substance: CEFOPERAZONE SODIUM\SULBACTAM SODIUM
     Route: 040
     Dates: start: 20230716, end: 20230719
  14. CEFOPERAZONE SODIUM\SULBACTAM SODIUM [Concomitant]
     Active Substance: CEFOPERAZONE SODIUM\SULBACTAM SODIUM
     Route: 040
     Dates: start: 20230814, end: 20230817
  15. MEROPENEM [Concomitant]
     Active Substance: MEROPENEM
     Route: 040
     Dates: start: 20230817
  16. potassium citrate oral solution [Concomitant]
     Route: 048
     Dates: start: 20230718, end: 20230912
  17. potassium citrate oral solution [Concomitant]
     Route: 048
     Dates: start: 20230707, end: 20230716
  18. potassium citrate oral solution [Concomitant]
     Route: 048
     Dates: start: 20230801, end: 20230809
  19. potassium citrate oral solution [Concomitant]
     Route: 048
     Dates: start: 20230717, end: 20230717
  20. potassium citrate oral solution [Concomitant]
     Route: 048
     Dates: start: 20230718, end: 20230912
  21. Valsartan capsules [Concomitant]
     Route: 048
     Dates: start: 2021
  22. COMPOUND CHLORHEXIDINE GARGLE [Concomitant]
     Dosage: OTHER ROUTE OF MEDICATION ADMIN-GARGLE
     Dates: start: 20230707, end: 20230912
  23. COMPOUND CHLORHEXIDINE GARGLE [Concomitant]
     Dosage: OTHER ROUTE OF MEDICATION ADMIN-GARGLE
     Dates: start: 20230808, end: 2024
  24. morphine sulfate sustained-release tablet [Concomitant]
     Route: 048
     Dates: start: 20230707, end: 20230912
  25. dextrose injection 50% [Concomitant]
     Route: 040
     Dates: start: 20230707, end: 20230912
  26. INSULIN HUMAN [Concomitant]
     Active Substance: INSULIN HUMAN
     Route: 040
     Dates: start: 20230718, end: 20230912
  27. AMBROXOL HYDROCHLORIDE [Concomitant]
     Active Substance: AMBROXOL HYDROCHLORIDE
     Route: 040
     Dates: start: 20230717, end: 20230825
  28. VORICONAZOLE [Concomitant]
     Active Substance: VORICONAZOLE
     Route: 048
     Dates: start: 20230707, end: 20230723
  29. VORICONAZOLE [Concomitant]
     Active Substance: VORICONAZOLE
     Route: 048
     Dates: start: 20230809, end: 20230821
  30. FUROSEMIDE [Concomitant]
     Active Substance: FUROSEMIDE
     Route: 040
     Dates: start: 20230717, end: 20230829
  31. FUROSEMIDE [Concomitant]
     Active Substance: FUROSEMIDE
     Route: 040
     Dates: start: 20230707, end: 20230716
  32. pantoprazole sodium enteric tablets [Concomitant]
     Route: 048
     Dates: start: 20230707, end: 20230831
  33. pantoprazole sodium enteric tablets [Concomitant]
     Route: 040
     Dates: start: 20230821, end: 20230824
  34. LACTULOSE [Concomitant]
     Active Substance: LACTULOSE
     Route: 048
     Dates: start: 20230707, end: 20230731
  35. ONDANSETRON HYDROCHLORIDE [Concomitant]
     Active Substance: ONDANSETRON HYDROCHLORIDE
     Route: 048
     Dates: start: 20230708, end: 20230710
  36. SODIUM BICARBONATE [Concomitant]
     Active Substance: SODIUM BICARBONATE
     Route: 040
     Dates: start: 20230708, end: 20230715
  37. PROMETHAZINE [Concomitant]
     Active Substance: PROMETHAZINE HYDROCHLORIDE
     Route: 030
     Dates: start: 20230710, end: 20230710
  38. PROMETHAZINE [Concomitant]
     Active Substance: PROMETHAZINE HYDROCHLORIDE
     Route: 030
     Dates: start: 20230708, end: 20230708
  39. Torasemide Injection [Concomitant]
     Route: 040
     Dates: start: 20230713, end: 20230713
  40. Torasemide Injection [Concomitant]
     Route: 040
     Dates: start: 20230720, end: 20230720
  41. acetylcysteine tablets [Concomitant]
     Route: 048
     Dates: start: 20230720, end: 20230912
  42. POTASSIUM CHLORIDE [Concomitant]
     Active Substance: POTASSIUM CHLORIDE
     Route: 040
     Dates: start: 20230801, end: 20230809
  43. montmorillonite powder [Concomitant]
     Route: 048
     Dates: start: 20230731, end: 20230803
  44. montmorillonite powder [Concomitant]
     Route: 048
     Dates: start: 20230812, end: 20230817
  45. montmorillonite powder [Concomitant]
     Route: 048
     Dates: start: 20230811, end: 2024
  46. berberine hydrochloride tablets [Concomitant]
     Route: 048
     Dates: start: 20230812, end: 20230817
  47. berberine hydrochloride tablets [Concomitant]
     Route: 048
     Dates: start: 20230731, end: 20230803
  48. NYSTATIN [Concomitant]
     Active Substance: NYSTATIN
  49. Human granulocyte stimulating factor injection [Concomitant]
     Route: 058
     Dates: start: 20230719, end: 20230722
  50. ENOXAPARIN SODIUM [Concomitant]
     Active Substance: ENOXAPARIN SODIUM
     Route: 058
     Dates: start: 20230811, end: 20230922
  51. DEXAMETHASONE SODIUM PHOSPHATE [Concomitant]
     Active Substance: DEXAMETHASONE SODIUM PHOSPHATE
     Route: 040
     Dates: start: 20230708, end: 20230708
  52. DEXAMETHASONE SODIUM PHOSPHATE [Concomitant]
     Active Substance: DEXAMETHASONE SODIUM PHOSPHATE
     Route: 040
     Dates: start: 20230710, end: 20230710
  53. DEXAMETHASONE SODIUM PHOSPHATE [Concomitant]
     Active Substance: DEXAMETHASONE SODIUM PHOSPHATE
     Route: 040
     Dates: start: 20230802, end: 20230803
  54. ERYTHROMYCIN [Concomitant]
     Active Substance: ERYTHROMYCIN
     Dates: start: 20230719, end: 2024
  55. GLYCERIN [Concomitant]
     Active Substance: GLYCERIN
     Route: 048
     Dates: start: 20230721, end: 20230721
  56. tannin ointment [Concomitant]
     Dates: end: 20230810
  57. polyene phosphatidylcholine capsules [Concomitant]
     Route: 048
     Dates: start: 20230822, end: 20230831

REACTIONS (8)
  - Myocardial injury [Recovered/Resolved]
  - Oral fungal infection [Recovered/Resolved]
  - Gastrointestinal infection [Recovered/Resolved]
  - Agranulocytosis [Recovered/Resolved]
  - Liver injury [Recovered/Resolved]
  - Urinary tract infection [Recovered/Resolved]
  - Thrombosis [Recovered/Resolved]
  - Diarrhoea [Recovered/Resolved]

NARRATIVE: CASE EVENT DATE: 20230710
